FAERS Safety Report 9115474 (Version 1)
Quarter: 2013Q1

REPORT INFORMATION
  Report Type: Spontaneous
  Country: US (occurrence: US)
  Receive Date: 20130225
  Receipt Date: 20130225
  Transmission Date: 20140127
  Serious: No
  Sender: FDA-Public Use
  Company Number: US-ENDO PHARMACEUTICALS INC.-FORT20120143

PATIENT
  Sex: Male
  Weight: 83.99 kg

DRUGS (2)
  1. FORTESTA [Suspect]
     Indication: MUSCLE BUILDING THERAPY
     Dosage: 40MG
     Route: 061
     Dates: start: 201205, end: 20120622
  2. FORTESTA [Suspect]
     Indication: WEIGHT LOSS DIET

REACTIONS (2)
  - Axillary pain [Not Recovered/Not Resolved]
  - Breast pain [Not Recovered/Not Resolved]
